FAERS Safety Report 5704699-9 (Version None)
Quarter: 2008Q2

REPORT INFORMATION
  Report Type: 
  Country: None (occurrence: None)
  Receive Date: 20080414
  Receipt Date: 20080404
  Transmission Date: 20081010
  Serious: Yes (Life-Threatening)
  Sender: FDA-Public Use
  Company Number: FR-ROCHE-557248

PATIENT
  Age: 8 Month
  Sex: Female
  Weight: 10 kg

DRUGS (5)
  1. VALIUM [Suspect]
     Indication: DRUG USE FOR UNKNOWN INDICATION
     Dosage: DOSAGE REGIMEN: 0.5 MG/KG 3 TIMES
     Route: 042
     Dates: start: 20080201
  2. RIVOTRIL [Suspect]
     Indication: DRUG USE FOR UNKNOWN INDICATION
     Dosage: DOSAGE REGIMEN: 0.025 MG/KG FOLLOWED BY 0.1 MG/KG PER 24 HOURS DURING 3 HOURS
     Route: 042
     Dates: start: 20080201
  3. THIOPENTAL SODIUM [Suspect]
     Indication: DRUG USE FOR UNKNOWN INDICATION
     Dosage: DOSAGE: 3 MG/KG PER HOUR DURING 5 HOURS FOLLOWED BY 2 MG/KG PER HOUR DURING 12 HOURS
     Route: 042
     Dates: start: 20080201
  4. FOSPHENYTOIN SODIUM [Suspect]
     Indication: DRUG USE FOR UNKNOWN INDICATION
     Route: 065
     Dates: start: 20080201
  5. GARDENAL [Suspect]
     Indication: DRUG USE FOR UNKNOWN INDICATION
     Route: 042
     Dates: start: 20080201

REACTIONS (3)
  - CARDIAC FAILURE CONGESTIVE [None]
  - CELL DEATH [None]
  - HEPATIC FAILURE [None]
